FAERS Safety Report 8540960-0 (Version None)
Quarter: 2012Q3

REPORT INFORMATION
  Report Type: 
  Country: None (occurrence: None)
  Receive Date: 20120726
  Receipt Date: 20110810
  Transmission Date: 20120928
  Serious: No
  Sender: FDA-Public Use
  Company Number: US-ASTRAZENECA-2011SE48039

PATIENT
  Age: 48 Year
  Sex: Female

DRUGS (6)
  1. VITAMIN TAB [Concomitant]
  2. CILOXITENE [Concomitant]
  3. LEVOTHYROXINE SODIUM [Concomitant]
  4. IRON SUPPLEMENT [Concomitant]
  5. SEROQUEL XR [Suspect]
     Indication: DEPRESSION
     Route: 048
     Dates: start: 20110101
  6. METHYLPHENIDATE HCL [Concomitant]

REACTIONS (3)
  - RASH PRURITIC [None]
  - THERAPEUTIC RESPONSE UNEXPECTED [None]
  - RASH ERYTHEMATOUS [None]
